FAERS Safety Report 5680642-6 (Version None)
Quarter: 2008Q1

REPORT INFORMATION
  Report Type: 
  Country: None (occurrence: None)
  Receive Date: 20080326
  Receipt Date: 20080118
  Transmission Date: 20080703
  Serious: No
  Sender: FDA-Public Use
  Company Number: A0704150A

PATIENT
  Sex: Female

DRUGS (9)
  1. FLOVENT [Suspect]
     Indication: ASTHMA
     Route: 055
  2. HYDROCODONE BITARTRATE [Concomitant]
  3. METHOCARBAMOL [Concomitant]
  4. FLONASE [Concomitant]
  5. RANITIDINE [Concomitant]
  6. ATIVAN [Concomitant]
  7. TRAMADOL HCL [Concomitant]
  8. CLONAZEPAM [Concomitant]
  9. ALBUTEROL [Concomitant]

REACTIONS (5)
  - CANDIDIASIS [None]
  - DRUG INEFFECTIVE [None]
  - EYE SWELLING [None]
  - PHARYNGOLARYNGEAL PAIN [None]
  - SWELLING FACE [None]
